FAERS Safety Report 8941922 (Version 1)
Quarter: 2012Q4

REPORT INFORMATION
  Report Type: 
  Country: JP (occurrence: JP)
  Receive Date: 20121203
  Receipt Date: 20121203
  Transmission Date: 20130627
  Serious: Yes (Hospitalization)
  Sender: FDA-Public Use
  Company Number: JP-009507513-1211JPN012593

PATIENT
  Age: 71 Year
  Sex: Male

DRUGS (1)
  1. NU-LOTAN [Suspect]
     Dosage: Daily dosage unknown
     Route: 048

REACTIONS (1)
  - Dyskinesia [Unknown]
